FAERS Safety Report 22600800 (Version 2)
Quarter: 2024Q3

REPORT INFORMATION
  Report Type: Spontaneous
  Country: CN (occurrence: CN)
  Receive Date: 20230614
  Receipt Date: 20240711
  Transmission Date: 20241016
  Serious: Yes (Other)
  Sender: RANBAXY
  Company Number: CN-SUN PHARMACEUTICAL INDUSTRIES LTD-2023R1-394469

PATIENT
  Age: 74 Year
  Sex: Male

DRUGS (2)
  1. DOCETAXEL [Suspect]
     Active Substance: DOCETAXEL\DOCETAXEL ANHYDROUS
     Indication: Chemotherapy
     Dosage: 120 MILLIGRAM (D1)
     Route: 065
  2. NEDAPLATIN [Suspect]
     Active Substance: NEDAPLATIN
     Indication: Chemotherapy
     Dosage: 100 MILLIGRAM (D1)
     Route: 065

REACTIONS (1)
  - Drug ineffective [Unknown]
